FAERS Safety Report 11854910 (Version 1)
Quarter: 2015Q4

REPORT INFORMATION
  Report Type: Spontaneous
  Country: US (occurrence: None)
  Receive Date: 20151218
  Receipt Date: 20151218
  Transmission Date: 20160305
  Serious: Yes (Hospitalization)
  Sender: FDA-Public Use
  Company Number: None

PATIENT
  Age: 48 Year
  Sex: Female
  Weight: 59.7 kg

DRUGS (1)
  1. FEMARA [Suspect]
     Active Substance: LETROZOLE
     Dates: end: 20151215

REACTIONS (4)
  - Abscess [None]
  - Wound dehiscence [None]
  - Chest wall tumour [None]
  - Postoperative wound complication [None]

NARRATIVE: CASE EVENT DATE: 20151216
